FAERS Safety Report 13728891 (Version 2)
Quarter: 2017Q3

REPORT INFORMATION
  Report Type: Spontaneous
  Country: FR (occurrence: FR)
  Receive Date: 20170707
  Receipt Date: 20170811
  Transmission Date: 20171127
  Serious: Yes (Other)
  Sender: FDA-Public Use
  Company Number: FR-ROCHE-1956428

PATIENT
  Age: 42 Year
  Sex: Male

DRUGS (19)
  1. NEORAL [Concomitant]
     Active Substance: CYCLOSPORINE
     Route: 065
  2. URAPIDIL [Concomitant]
     Active Substance: URAPIDIL
     Route: 065
  3. APROVEL [Concomitant]
     Active Substance: IRBESARTAN
     Route: 065
  4. CYMEVAN [Suspect]
     Active Substance: GANCICLOVIR
     Indication: CYTOMEGALOVIRUS INFECTION
     Dosage: ONGOING
     Route: 041
     Dates: start: 20170523
  5. PREDNISONE. [Concomitant]
     Active Substance: PREDNISONE
  6. SODIUM BICARBONATE. [Concomitant]
     Active Substance: SODIUM BICARBONATE
     Route: 065
  7. LERCAN [Concomitant]
     Active Substance: LERCANIDIPINE
     Route: 065
  8. LEVEMIR [Concomitant]
     Active Substance: INSULIN DETEMIR
     Route: 065
  9. SPASFON (FRANCE) [Concomitant]
     Active Substance: PHLOROGLUCINOL\1,3,5-TRIMETHOXYBENZENE
     Indication: ABDOMINAL PAIN
  10. PRAVASTATIN. [Concomitant]
     Active Substance: PRAVASTATIN
     Route: 065
  11. OMEPRAZOLE. [Concomitant]
     Active Substance: OMEPRAZOLE
     Route: 065
  12. HUMALOG [Concomitant]
     Active Substance: INSULIN LISPRO
  13. CELLCEPT [Concomitant]
     Active Substance: MYCOPHENOLATE MOFETIL\MYCOPHENOLATE MOFETIL HYDROCHLORIDE
     Route: 065
  14. CYMEVAN [Suspect]
     Active Substance: GANCICLOVIR
     Dosage: ONGOING
     Route: 041
     Dates: start: 20170530
  15. CYMEVAN [Suspect]
     Active Substance: GANCICLOVIR
     Dosage: ONGOING
     Route: 041
     Dates: start: 20170606
  16. CALCIPARINE [Suspect]
     Active Substance: HEPARIN CALCIUM
     Indication: THROMBOSIS PROPHYLAXIS
     Dosage: 5000 IU/0.2 ML
     Route: 058
     Dates: start: 20170525, end: 20170606
  17. ARANESP [Concomitant]
     Active Substance: DARBEPOETIN ALFA
     Route: 065
  18. LASILIX [Concomitant]
     Active Substance: FUROSEMIDE
     Route: 065
  19. CIPRO [Suspect]
     Active Substance: CIPROFLOXACIN HYDROCHLORIDE
     Indication: CAMPYLOBACTER COLITIS
     Route: 041
     Dates: start: 20170526, end: 20170601

REACTIONS (1)
  - Hepatocellular injury [Recovered/Resolved]

NARRATIVE: CASE EVENT DATE: 20170601
